FAERS Safety Report 22649360 (Version 1)
Quarter: 2023Q2

REPORT INFORMATION
  Report Type: Spontaneous
  Country: NO (occurrence: NO)
  Receive Date: 20230628
  Receipt Date: 20230628
  Transmission Date: 20230722
  Serious: Yes (Other)
  Sender: FDA-Public Use
  Company Number: None

PATIENT
  Age: 51 Year
  Sex: Female
  Weight: 103 kg

DRUGS (6)
  1. DALFAMPRIDINE [Suspect]
     Active Substance: DALFAMPRIDINE
     Indication: Gait disturbance
     Dosage: MORNING AND EVENING.
     Dates: start: 202203, end: 202205
  2. CALCIUM [Concomitant]
     Active Substance: CALCIUM
  3. VITAMIN B [Concomitant]
     Active Substance: VITAMIN B
  4. VITAMIN D [Concomitant]
     Active Substance: VITAMIN D NOS
  5. VITAMIN C [Concomitant]
     Active Substance: ASCORBIC ACID
  6. AMITRIPTYLINE HYDROCHLORIDE [Concomitant]
     Active Substance: AMITRIPTYLINE HYDROCHLORIDE
     Indication: Neuralgia
     Dosage: 6 TABLETS 10 MG

REACTIONS (5)
  - Balance disorder [Recovered/Resolved with Sequelae]
  - Rib fracture [Recovered/Resolved with Sequelae]
  - Limb injury [Unknown]
  - Fall [Recovered/Resolved with Sequelae]
  - Multiple fractures [Recovered/Resolved with Sequelae]

NARRATIVE: CASE EVENT DATE: 20220301
